FAERS Safety Report 6989308 (Version 5)
Quarter: 2013Q1

REPORT INFORMATION
  Report Type: Spontaneous
  Country: GB (occurrence: GB)
  Receive Date: 20090507
  Receipt Date: 20130326
  Transmission Date: 20140127
  Serious: Yes (Other)
  Sender: FDA-Public Use
  Company Number: GB-ALEXION-A200800419

PATIENT
  Age: 32 None
  Sex: Female

DRUGS (3)
  1. SOLIRIS [Suspect]
     Indication: PAROXYSMAL NOCTURNAL HAEMOGLOBINURIA
     Dosage: 900 MG, UNK
     Route: 042
     Dates: start: 2002
  2. WARFARIN [Concomitant]
     Indication: ANTICOAGULANT THERAPY
  3. HEPARIN [Concomitant]

REACTIONS (2)
  - Pre-eclampsia [Unknown]
  - Pregnancy [Recovered/Resolved]
